FAERS Safety Report 8538970-2 (Version None)
Quarter: 2012Q3

REPORT INFORMATION
  Report Type: 
  Country: None (occurrence: None)
  Receive Date: 20120726
  Receipt Date: 20120720
  Transmission Date: 20120928
  Serious: Yes (Hospitalization, Disabling, Other)
  Sender: FDA-Public Use
  Company Number: PHEH2011US00492

PATIENT
  Sex: Male

DRUGS (19)
  1. NOVOLOG [Concomitant]
  2. COUMADIN [Concomitant]
  3. METFORMIN HYDROCHLORIDE [Concomitant]
  4. ENALAPRIL MALEATE [Concomitant]
  5. ZOMETA [Suspect]
     Route: 042
     Dates: start: 20060901, end: 20091001
  6. ATENOLOL [Concomitant]
     Dosage: 25 MG, ONCE/SINGLE
  7. INSULIN [Concomitant]
  8. TAXOTERE [Concomitant]
  9. DEXAMETASON [Concomitant]
  10. GABAPENTIN [Concomitant]
  11. METOPROLOL SUCCINATE [Concomitant]
  12. TRICOR [Concomitant]
  13. VITA-E [Concomitant]
  14. TORSEMIDE [Concomitant]
     Dosage: 20 MG,  DAILY
  15. NORVASC [Concomitant]
  16. LYCOPENE [Concomitant]
  17. FLOMAX [Concomitant]
  18. GLIPIZIDE [Concomitant]
  19. SELENIUM [Concomitant]

REACTIONS (69)
  - DEHYDRATION [None]
  - INJURY [None]
  - OSTEOMYELITIS [None]
  - OSTEOARTHRITIS [None]
  - NEUROPATHY PERIPHERAL [None]
  - HYPERHIDROSIS [None]
  - FATIGUE [None]
  - LIPOMA [None]
  - ADRENAL ADENOMA [None]
  - URINARY RETENTION [None]
  - SPONDYLOLISTHESIS [None]
  - GAIT DISTURBANCE [None]
  - OVERWEIGHT [None]
  - CORNEAL OPACITY [None]
  - FACET JOINT SYNDROME [None]
  - HEPATIC CYST [None]
  - RADICULOPATHY [None]
  - OBSTRUCTIVE UROPATHY [None]
  - PERIPHERAL ARTERY ANEURYSM [None]
  - METASTASES TO BONE [None]
  - CERVICAL CORD COMPRESSION [None]
  - FALL [None]
  - ARTHRITIS [None]
  - INTERVERTEBRAL DISC DEGENERATION [None]
  - CORONARY ARTERY DISEASE [None]
  - RENAL CYST [None]
  - EYE DISCHARGE [None]
  - ATRIAL FIBRILLATION [None]
  - OSTEOSCLEROSIS [None]
  - SKIN ULCER [None]
  - ONYCHOMYCOSIS [None]
  - INFECTION [None]
  - MYELOMALACIA [None]
  - HYDRONEPHROSIS [None]
  - URINARY TRACT INFECTION [None]
  - RENAL FAILURE CHRONIC [None]
  - OSTEOPENIA [None]
  - SPINAL DISORDER [None]
  - HYPERLIPIDAEMIA [None]
  - SEPSIS [None]
  - OSTEONECROSIS OF JAW [None]
  - INTERVERTEBRAL DISC PROTRUSION [None]
  - BLADDER OUTLET OBSTRUCTION [None]
  - CEREBRAL ATROPHY [None]
  - HAEMOPTYSIS [None]
  - SACROILIITIS [None]
  - DIABETIC NEUROPATHY [None]
  - DIABETIC FOOT [None]
  - BONE LOSS [None]
  - PAIN [None]
  - DEFORMITY [None]
  - DISCOMFORT [None]
  - ANXIETY [None]
  - DYSPHAGIA [None]
  - PROSTATE CANCER [None]
  - LYMPHADENOPATHY [None]
  - BENIGN NEOPLASM OF ADRENAL GLAND [None]
  - HEPATIC LESION [None]
  - LUNG NEOPLASM [None]
  - THYROID NEOPLASM [None]
  - ONYCHALGIA [None]
  - BACK PAIN [None]
  - URINARY INCONTINENCE [None]
  - EXPOSED BONE IN JAW [None]
  - PAIN IN JAW [None]
  - SWELLING [None]
  - DYSPNOEA [None]
  - OEDEMA PERIPHERAL [None]
  - PYREXIA [None]
